FAERS Safety Report 20986554 (Version 1)
Quarter: 2022Q2

REPORT INFORMATION
  Report Type: 
  Country: US (occurrence: US)
  Receive Date: 20220621
  Receipt Date: 20220621
  Transmission Date: 20220721
  Serious: No
  Sender: FDA-Public Use
  Company Number: US-C B Fleet Co Inc-202109-US-003243

PATIENT
  Sex: Female

DRUGS (1)
  1. NIX [Suspect]
     Active Substance: PERMETHRIN
     Indication: Lice infestation
     Dosage: USING OVER A YEAR
     Route: 061

REACTIONS (4)
  - Swelling of eyelid [Recovered/Resolved]
  - Skin discolouration [Not Recovered/Not Resolved]
  - Accidental exposure to product [None]
  - Incorrect product administration duration [None]
